FAERS Safety Report 5175876-3 (Version None)
Quarter: 2006Q4

REPORT INFORMATION
  Report Type: 
  Country: None (occurrence: None)
  Receive Date: 20061215
  Receipt Date: 20061205
  Transmission Date: 20070319
  Serious: Yes (Other)
  Sender: FDA-Public Use
  Company Number: CA-GLAXOSMITHKLINE-A0630530A

PATIENT
  Age: 36 Year
  Sex: Female

DRUGS (3)
  1. FLONASE [Suspect]
     Indication: DRUG USE FOR UNKNOWN INDICATION
     Route: 045
  2. UNSPECIFIED MEDICATION [Concomitant]
     Indication: EYE ALLERGY
     Route: 047
  3. TRIPHASIL-28 [Concomitant]
     Route: 048

REACTIONS (7)
  - BLEPHAROSPASM [None]
  - DRUG ABUSER [None]
  - MYOPIA [None]
  - OPEN ANGLE GLAUCOMA [None]
  - OPTIC NERVE CUPPING [None]
  - OPTIC NERVE DISORDER [None]
  - VISION BLURRED [None]
